FAERS Safety Report 9798973 (Version 1)
Quarter: 2013Q4

REPORT INFORMATION
  Report Type: Spontaneous
  Country: US (occurrence: None)
  Receive Date: 20131231
  Receipt Date: 20131231
  Transmission Date: 20140711
  Serious: Yes (Hospitalization)
  Sender: FDA-Public Use
  Company Number: UCM201312-000098

PATIENT
  Age: 61 Year
  Sex: Male

DRUGS (5)
  1. AMLODIPINE (AMLODIPINE) (AMLODIPINE) [Suspect]
  2. BUDESONIDE [Suspect]
     Route: 048
  3. PRAVASTATIN [Suspect]
  4. OLMESARTAN [Suspect]
     Dates: start: 2008
  5. ASPIRIN (ASPIRIN) (ASPIRIN) [Suspect]

REACTIONS (4)
  - Colitis microscopic [None]
  - Weight decreased [None]
  - Decreased appetite [None]
  - Fatigue [None]
